FAERS Safety Report 21153374 (Version 1)
Quarter: 2022Q3

REPORT INFORMATION
  Report Type: Spontaneous
  Country: US (occurrence: US)
  Receive Date: 20220731
  Receipt Date: 20220731
  Transmission Date: 20221026
  Serious: No
  Sender: FDA-Public Use
  Company Number: US-ELI_LILLY_AND_COMPANY-US202207013704

PATIENT
  Age: 12 Year
  Sex: Male

DRUGS (4)
  1. HUMALOG JUNIOR KWIKPEN [Suspect]
     Active Substance: INSULIN LISPRO
     Indication: Type 1 diabetes mellitus
     Dosage: UNK UNK, UNKNOWN
     Route: 065
     Dates: start: 2018
  2. HUMALOG JUNIOR KWIKPEN [Suspect]
     Active Substance: INSULIN LISPRO
     Dosage: UNK UNK, UNKNOWN
     Route: 065
  3. FIASP [Concomitant]
     Active Substance: INSULIN ASPART
     Indication: Type 1 diabetes mellitus
  4. SEMGLEE [INSULIN GLARGINE YFGN] [Concomitant]
     Indication: Type 1 diabetes mellitus

REACTIONS (3)
  - Intentional product misuse [Unknown]
  - Blood glucose increased [Unknown]
  - Drug ineffective [Unknown]

NARRATIVE: CASE EVENT DATE: 20220621
